FAERS Safety Report 8676958 (Version 2)
Quarter: 2012Q4

REPORT INFORMATION
  Report Type: 
  Country: DE (occurrence: DE)
  Receive Date: 20120723
  Receipt Date: 20121207
  Transmission Date: 20130627
  Serious: Yes (Life-Threatening)
  Sender: FDA-Public Use
  Company Number: DE-009507513-1207DEU004283

PATIENT
  Age: 26 Year
  Sex: Female

DRUGS (1)
  1. PUREGON [Suspect]
     Indication: OVULATION INDUCTION
     Dosage: 25 IU, UNK
     Dates: start: 20101028

REACTIONS (1)
  - Non-Hodgkin^s lymphoma [Not Recovered/Not Resolved]
